FAERS Safety Report 15406619 (Version 1)
Quarter: 2018Q3

REPORT INFORMATION
  Report Type: Other
  Country: CA (occurrence: CA)
  Receive Date: 20180920
  Receipt Date: 20180920
  Transmission Date: 20181010
  Serious: Yes (Hospitalization)
  Sender: FDA-Public Use
  Company Number: CA-PFIZER INC-2018372697

PATIENT
  Age: 76 Year
  Sex: Female

DRUGS (2)
  1. METHYLPREDNISOLONE SODIUM SUCCINATE. [Suspect]
     Active Substance: METHYLPREDNISOLONE SODIUM SUCCINATE
     Indication: OPTIC ISCHAEMIC NEUROPATHY
     Dosage: 250 MG, 4X/DAY
     Route: 042
  2. PREDNISONE. [Suspect]
     Active Substance: PREDNISONE
     Indication: OPTIC ISCHAEMIC NEUROPATHY
     Dosage: UNK
     Route: 048

REACTIONS (3)
  - Asthenia [Unknown]
  - Diarrhoea [Unknown]
  - Vomiting [Unknown]
